FAERS Safety Report 17898607 (Version 5)
Quarter: 2022Q2

REPORT INFORMATION
  Report Type: Report from Study
  Country: CN (occurrence: CN)
  Receive Date: 20200615
  Receipt Date: 20220427
  Transmission Date: 20220720
  Serious: Yes (Life-Threatening, Hospitalization)
  Sender: FDA-Public Use
  Company Number: None

PATIENT
  Age: 51 Year
  Sex: Female
  Weight: 51.2 kg

DRUGS (10)
  1. TNO-155 MONOSUCCINATE HEMIHYDRATE [Suspect]
     Active Substance: TNO-155 MONOSUCCINATE HEMIHYDRATE
     Indication: Non-small cell lung cancer
     Dosage: 60 MG, QD
     Route: 048
     Dates: start: 20200527, end: 20200608
  2. RIBOCICLIB [Suspect]
     Active Substance: RIBOCICLIB
     Indication: Non-small cell lung cancer
     Dosage: 200 MG, QD
     Route: 048
     Dates: start: 20200527, end: 20200608
  3. CELECOXIB [Concomitant]
     Active Substance: CELECOXIB
     Indication: Axillary pain
     Dosage: 200 MG, QD
     Route: 048
     Dates: start: 20200614, end: 20200617
  4. CARBAZOCHROME SODIUM SULFONATE [Concomitant]
     Active Substance: CARBAZOCHROME SODIUM SULFONATE
     Indication: Haemorrhoids
     Dosage: UNK
     Route: 065
     Dates: start: 20200617, end: 20200619
  5. LACTULOSE [Concomitant]
     Active Substance: LACTULOSE
     Indication: Constipation
     Dosage: UNK
     Route: 048
     Dates: start: 20200621, end: 20200622
  6. GLYCERIN [Concomitant]
     Active Substance: GLYCERIN
     Indication: Constipation
     Dosage: UNK (ENEMA)
     Route: 065
     Dates: start: 20200621, end: 20210621
  7. ESTAZOLAM [Concomitant]
     Active Substance: ESTAZOLAM
     Indication: Insomnia
     Dosage: UNK
     Route: 065
     Dates: start: 20200622, end: 20200622
  8. MAGNESIUM SULFATE [Concomitant]
     Active Substance: MAGNESIUM SULFATE
     Indication: Hypomagnesaemia
     Dosage: UNK
     Route: 065
     Dates: start: 20200609, end: 20200609
  9. DIMETHICONE [Concomitant]
     Active Substance: DIMETHICONE
     Indication: Abdominal distension
     Dosage: UNK
     Route: 065
     Dates: start: 20200609, end: 20200616
  10. CODEINE PHOSPHATE [Concomitant]
     Active Substance: CODEINE PHOSPHATE
     Indication: Cough
     Dosage: UNK
     Route: 065
     Dates: start: 20200527

REACTIONS (6)
  - Diarrhoea [Recovering/Resolving]
  - Myelosuppression [Recovered/Resolved]
  - White blood cell count decreased [Recovering/Resolving]
  - Platelet count decreased [Recovering/Resolving]
  - Neutrophil count decreased [Recovered/Resolved]
  - Hypokalaemia [Recovering/Resolving]

NARRATIVE: CASE EVENT DATE: 20200608
